FAERS Safety Report 22374602 (Version 2)
Quarter: 2023Q2

REPORT INFORMATION
  Report Type: Spontaneous
  Country: AU (occurrence: AU)
  Receive Date: 20230526
  Receipt Date: 20230601
  Transmission Date: 20230721
  Serious: Yes (Hospitalization)
  Sender: FDA-Public Use
  Company Number: AU-BAUSCH-BL-2023-007904

PATIENT
  Age: 71 Year
  Sex: Male
  Weight: 92 kg

DRUGS (6)
  1. FLUOROURACIL [Suspect]
     Active Substance: FLUOROURACIL
     Indication: Product used for unknown indication
     Dosage: 5%W/W
     Route: 065
     Dates: start: 20230504, end: 20230518
  2. AMLODIPINE [Concomitant]
     Active Substance: AMLODIPINE BESYLATE
     Indication: Product used for unknown indication
     Dosage: 1 TAB DAILY
     Dates: start: 2022
  3. CANDESARTAN CILEXETIL\HYDROCHLOROTHIAZIDE [Concomitant]
     Active Substance: CANDESARTAN CILEXETIL\HYDROCHLOROTHIAZIDE
     Indication: Product used for unknown indication
     Dosage: 32/12.5 MG
  4. CRESTOR [Concomitant]
     Active Substance: ROSUVASTATIN CALCIUM
     Indication: Product used for unknown indication
     Dates: start: 2000
  5. FUROSEMIDE [Concomitant]
     Active Substance: FUROSEMIDE
     Indication: Product used for unknown indication
  6. SERETIDE [Concomitant]
     Active Substance: FLUTICASONE PROPIONATE\SALMETEROL XINAFOATE
     Indication: Product used for unknown indication
     Dosage: 250/25 MCG, 2 PUFFS
     Dates: start: 2000

REACTIONS (6)
  - Atrial fibrillation [Recovered/Resolved]
  - Dyspnoea [Unknown]
  - Palpitations [Recovered/Resolved]
  - Productive cough [Unknown]
  - Obstructive airways disorder [Unknown]
  - Expired product administered [Unknown]

NARRATIVE: CASE EVENT DATE: 20230504
